FAERS Safety Report 14261493 (Version 1)
Quarter: 2017Q4

REPORT INFORMATION
  Report Type: Spontaneous
  Country: US (occurrence: US)
  Receive Date: 20171208
  Receipt Date: 20171208
  Transmission Date: 20180321
  Serious: Yes (Other)
  Sender: FDA-Public Use
  Company Number: US-ROCHE-2036432

PATIENT
  Sex: Male

DRUGS (3)
  1. ACTIVASE [Suspect]
     Active Substance: ALTEPLASE
     Indication: PULMONARY EMBOLISM
     Dosage: 10 PERCENT GIVEN AS A BOLUS
     Route: 040
  2. ACTIVASE [Suspect]
     Active Substance: ALTEPLASE
     Dosage: 90 PERCENT AS AN INFUSION
     Route: 042
  3. ACTIVASE [Suspect]
     Active Substance: ALTEPLASE
     Dosage: OVER 5 MINUTES
     Route: 042

REACTIONS (3)
  - Incorrect dose administered [Unknown]
  - Right ventricular dysfunction [Unknown]
  - Troponin increased [Unknown]
